FAERS Safety Report 7268264-7 (Version None)
Quarter: 2011Q1

REPORT INFORMATION
  Report Type: 
  Country: None (occurrence: None)
  Receive Date: 20110121
  Receipt Date: 20110113
  Transmission Date: 20110831
  Serious: Yes (Hospitalization)
  Sender: FDA-Public Use
  Company Number: OMPQ-NO-1101S-0037

PATIENT
  Age: 18 Year
  Sex: Female

DRUGS (12)
  1. DOMEPERIDONE [Concomitant]
  2. BROMAZEPAM [Concomitant]
  3. ACCUPAQUE (IOHEXOL) [Suspect]
     Indication: RENAL COLIC
     Dosage: SINGLE DOSE, I.V.
     Route: 042
     Dates: start: 20100915, end: 20100915
  4. ACCUPAQUE (IOHEXOL) [Suspect]
     Indication: RENAL COLIC
     Dosage: SINGLE DOSE, I.V.
     Route: 042
     Dates: start: 20101006, end: 20101006
  5. TEMOZOLOMIDE [Suspect]
     Indication: BRAIN NEOPLASM MALIGNANT
     Dates: start: 20100909, end: 20101026
  6. GADOTERIC ACID [Suspect]
     Dosage: SINGLE DOSE, I.V. ; SINGLE DOSE, I.V. ; SINGLE DOSE, I.V.
     Route: 042
     Dates: start: 20100810, end: 20100810
  7. GADOTERIC ACID [Suspect]
     Dosage: SINGLE DOSE, I.V. ; SINGLE DOSE, I.V. ; SINGLE DOSE, I.V.
     Route: 042
     Dates: start: 20100818, end: 20100818
  8. GADOTERIC ACID [Suspect]
     Dosage: SINGLE DOSE, I.V. ; SINGLE DOSE, I.V. ; SINGLE DOSE, I.V.
     Route: 042
     Dates: start: 20101130, end: 20101130
  9. PENTAMIDINE ISETHIONATE [Suspect]
     Dates: start: 20101015
  10. ESOMEPRAZOLE [Suspect]
     Dates: start: 20100901
  11. DEXAMETHASONE [Concomitant]
  12. ONDANSERTRON HCL [Concomitant]

REACTIONS (7)
  - RENAL TUBULAR DISORDER [None]
  - URINE SODIUM DECREASED [None]
  - HYPERURICOSURIA [None]
  - RENAL COLIC [None]
  - PATHOGEN RESISTANCE [None]
  - URINARY TRACT INFECTION STAPHYLOCOCCAL [None]
  - NEPHROLITHIASIS [None]
